FAERS Safety Report 8128184-2 (Version None)
Quarter: 2011Q4

REPORT INFORMATION
  Report Type: 
  Country: None (occurrence: None)
  Receive Date: 20111228
  Receipt Date: 20110330
  Transmission Date: 20120403
  Serious: Yes (Other)
  Sender: FDA-Public Use
  Company Number: WAES 1103USA03913

PATIENT
  Sex: Female

DRUGS (1)
  1. ZETIA [Suspect]
     Dosage: 10 MG/DAILY/PO
     Route: 048

REACTIONS (1)
  - LIVER FUNCTION TEST ABNORMAL [None]
